FAERS Safety Report 14564929 (Version 1)
Quarter: 2018Q1

REPORT INFORMATION
  Report Type: Spontaneous
  Country: US (occurrence: US)
  Receive Date: 20180223
  Receipt Date: 20180223
  Transmission Date: 20180509
  Serious: No
  Sender: FDA-Public Use
  Company Number: US-TEVA-2018-US-861389

PATIENT
  Age: 26 Year
  Sex: Female
  Weight: 57 kg

DRUGS (1)
  1. PARAGARD T 380A [Suspect]
     Active Substance: COPPER
     Indication: CONTRACEPTION
     Route: 065
     Dates: start: 20170823, end: 20180124

REACTIONS (2)
  - Complication associated with device [Recovered/Resolved]
  - Hypomenorrhoea [Unknown]

NARRATIVE: CASE EVENT DATE: 20180123
